FAERS Safety Report 14843953 (Version 2)
Quarter: 2018Q3

REPORT INFORMATION
  Report Type: Spontaneous
  Country: FR (occurrence: FR)
  Receive Date: 20180503
  Receipt Date: 20180724
  Transmission Date: 20181010
  Serious: Yes (Life-Threatening, Other)
  Sender: FDA-Public Use
  Company Number: PHHY2017FR202883

PATIENT
  Age: 78 Year
  Sex: Female

DRUGS (13)
  1. HEPARIN [Suspect]
     Active Substance: HEPARIN SODIUM
     Indication: MITRAL VALVE REPLACEMENT
     Dosage: 2400 IU, QD
     Route: 042
     Dates: start: 20171026
  2. ADRENALINE [Suspect]
     Active Substance: EPINEPHRINE
     Indication: SHOCK
     Dosage: 0.5 MG, QH (CYCLICAL)
     Route: 042
     Dates: start: 20171026
  3. INEXIUM [Suspect]
     Active Substance: ESOMEPRAZOLE
     Indication: PROPHYLAXIS AGAINST GASTROINTESTINAL ULCER
     Dosage: 40 MG, QD
     Route: 042
     Dates: start: 20171026
  4. ADRENALINE [Suspect]
     Active Substance: EPINEPHRINE
     Dosage: 0.5 MG, QH (CYCLICAL)
     Route: 042
     Dates: start: 20171121
  5. INEXIUM [Suspect]
     Active Substance: ESOMEPRAZOLE
     Dosage: 40 MG, QD
     Route: 042
     Dates: start: 20171121
  6. NORADRENALINE [Suspect]
     Active Substance: NOREPINEPHRINE
     Dosage: 0.2 MG, QH (CYCLICAL)
     Route: 042
     Dates: start: 20171121
  7. HEPARIN [Suspect]
     Active Substance: HEPARIN SODIUM
     Dosage: 2400 IU, QD
     Route: 042
     Dates: start: 20171121
  8. CEFTRIAXONE. [Suspect]
     Active Substance: CEFTRIAXONE
     Indication: ENDOCARDITIS
     Dosage: 4 G, QD
     Route: 042
     Dates: start: 20171024
  9. CEFTRIAXONE. [Suspect]
     Active Substance: CEFTRIAXONE
     Dosage: 4 G, QD
     Route: 042
     Dates: start: 20171121
  10. AMOXICILLIN TRIHYDRATE [Suspect]
     Active Substance: AMOXICILLIN
     Indication: ENDOCARDITIS
     Dosage: 12 G, QD
     Route: 042
     Dates: start: 20171024
  11. PHOXILIUM [Suspect]
     Active Substance: CALCIUM CL\MAGNESIUM CL\POTASSIUM CL\SODIUM BICAR\SODIUM CL\SODIUM PHOSPHATE,DIB
     Indication: HAEMOFILTRATION
     Dosage: 1600 L, UNK
     Route: 010
     Dates: start: 20171028, end: 20171029
  12. NORADRENALINE [Suspect]
     Active Substance: NOREPINEPHRINE
     Indication: SHOCK
     Dosage: 0.2 MG, QH (CYCLICAL)
     Route: 042
     Dates: start: 20171026
  13. AMOXICILLIN TRIHYDRATE [Suspect]
     Active Substance: AMOXICILLIN
     Dosage: 12 G, QD
     Route: 042
     Dates: start: 20171121

REACTIONS (3)
  - Metabolic acidosis [Recovered/Resolved]
  - Condition aggravated [Recovered/Resolved]
  - Anion gap increased [Recovered/Resolved]

NARRATIVE: CASE EVENT DATE: 20171028
